FAERS Safety Report 8163448-8 (Version None)
Quarter: 2012Q1

REPORT INFORMATION
  Report Type: 
  Country: None (occurrence: None)
  Receive Date: 20120224
  Receipt Date: 20120217
  Transmission Date: 20120608
  Serious: Yes (Hospitalization)
  Sender: FDA-Public Use
  Company Number: US-BAYER-2011-102110

PATIENT
  Age: 41 Year
  Sex: Female
  Weight: 55.782 kg

DRUGS (1)
  1. YAZ [Suspect]
     Indication: ORAL CONTRACEPTION
     Dosage: UNK UNK, QD
     Dates: start: 20060718, end: 20100524

REACTIONS (3)
  - INJURY [None]
  - PAIN [None]
  - PULMONARY EMBOLISM [None]
